FAERS Safety Report 8260860-3 (Version None)
Quarter: 2012Q2

REPORT INFORMATION
  Report Type: 
  Country: None (occurrence: None)
  Receive Date: 20120402
  Receipt Date: 20120320
  Transmission Date: 20120825
  Serious: No
  Sender: FDA-Public Use
  Company Number: B0791798A

PATIENT
  Age: 12 Month
  Sex: Male

DRUGS (2)
  1. TOPOTECAN HYDROCHLORIDE [Suspect]
     Indication: RETINOBLASTOMA
     Dosage: .3 MG / UNK / INTRAARTERIAL
     Route: 013
  2. MELPHALAN HYDROCHLORIDE [Suspect]
     Indication: RETINOBLASTOMA
     Dosage: 4 MG / UNK / INTRAARTERIAL
     Route: 013

REACTIONS (3)
  - VITREOUS HAEMORRHAGE [None]
  - EYE EXCISION [None]
  - RETINAL HAEMORRHAGE [None]
